FAERS Safety Report 4296056-X (Version None)
Quarter: 2004Q1

REPORT INFORMATION
  Report Type: 
  Country: None (occurrence: None)
  Receive Date: 20040212
  Receipt Date: 20040202
  Transmission Date: 20041129
  Serious: Yes (Hospitalization)
  Sender: FDA-Public Use
  Company Number: 2004197070IR

PATIENT
  Age: 52 Year
  Sex: Female

DRUGS (3)
  1. DELTA-CORTEF [Suspect]
     Dosage: 15 MG, QD, ORAL
     Route: 048
  2. CYCLOSPORINE [Suspect]
     Dosage: 100 MG, BID, ORAL
     Route: 048
  3. AZATHIOPRINE [Suspect]
     Dosage: 100 MG, QD, ORAL
     Route: 048

REACTIONS (13)
  - ABNORMAL CHEST SOUND [None]
  - BRAIN ABSCESS [None]
  - CRACKLES LUNG [None]
  - CREPITATIONS [None]
  - DIZZINESS [None]
  - GAIT DISTURBANCE [None]
  - LUNG INFILTRATION [None]
  - MEMORY IMPAIRMENT [None]
  - NOCARDIOSIS [None]
  - PRODUCTIVE COUGH [None]
  - PULMONARY MASS [None]
  - PYREXIA [None]
  - TACHYPNOEA [None]
